FAERS Safety Report 25083057 (Version 4)
Quarter: 2025Q3

REPORT INFORMATION
  Report Type: Spontaneous
  Country: JP (occurrence: JP)
  Receive Date: 20250317
  Receipt Date: 20250713
  Transmission Date: 20251020
  Serious: Yes (Death, Hospitalization, Other)
  Sender: GLAXOSMITHKLINE
  Company Number: JP-GSKJP-JP2025JPN030473AA

PATIENT
  Age: 76 Year
  Sex: Male
  Weight: 53.6 kg

DRUGS (7)
  1. DAPRODUSTAT [Suspect]
     Active Substance: DAPRODUSTAT
     Indication: Nephrogenic anaemia
  2. DAPRODUSTAT [Suspect]
     Active Substance: DAPRODUSTAT
     Dosage: 12 MG, 1D
  3. ASPIRIN [Suspect]
     Active Substance: ASPIRIN
     Indication: Mitral valve incompetence
  4. SODIUM FERROUS CITRATE [Concomitant]
     Active Substance: SODIUM FERROUS CITRATE
     Indication: Anaemia
     Dosage: 100 MG, 1D
  5. FUROSEMIDE [Concomitant]
     Active Substance: FUROSEMIDE
     Indication: Chronic kidney disease
     Dosage: 100 MG, 1D
  6. FUROSEMIDE [Concomitant]
     Active Substance: FUROSEMIDE
     Indication: Chronic kidney disease
     Dosage: 80 MG, 1D
  7. FUROSEMIDE [Concomitant]
     Active Substance: FUROSEMIDE
     Dosage: 40 MG, 1D

REACTIONS (12)
  - Acute myocardial infarction [Fatal]
  - Coronary artery thrombosis [Fatal]
  - Cardiac failure [Unknown]
  - Depressed level of consciousness [Fatal]
  - Pulseless electrical activity [Fatal]
  - Acute kidney injury [Not Recovered/Not Resolved]
  - Haemolytic anaemia [Unknown]
  - Bacteraemia [Unknown]
  - Haematuria [Not Recovered/Not Resolved]
  - Gastrooesophageal reflux disease [Unknown]
  - Nausea [Unknown]
  - Paraesthesia [Unknown]

NARRATIVE: CASE EVENT DATE: 20230512
